FAERS Safety Report 4647786-9 (Version None)
Quarter: 2005Q2

REPORT INFORMATION
  Report Type: 
  Country: None (occurrence: None)
  Receive Date: 20050427
  Receipt Date: 20050427
  Transmission Date: 20051028
  Serious: Yes (Hospitalization)
  Sender: FDA-Public Use
  Company Number: None

PATIENT
  Age: 83 Year
  Sex: Female
  Weight: 70 kg

DRUGS (2)
  1. CELECOXIB  200MG  PFIZER [Suspect]
     Dosage: 200MG  BID ORAL
     Route: 048
  2. HYZAAR [Suspect]
     Indication: HYPERTENSION
     Dosage: 100/25MG  DAILY ORAL
     Route: 048

REACTIONS (5)
  - ACUTE RESPIRATORY FAILURE [None]
  - CELLULITIS [None]
  - HYPONATRAEMIA [None]
  - SECRETION DISCHARGE [None]
  - SKIN DISCOLOURATION [None]
